FAERS Safety Report 5509386-8 (Version None)
Quarter: 2007Q4

REPORT INFORMATION
  Report Type: 
  Country: None (occurrence: None)
  Receive Date: 20071107
  Receipt Date: 20071030
  Transmission Date: 20080405
  Serious: Yes (Other)
  Sender: FDA-Public Use
  Company Number: JP-MERCK-0711USA00551

PATIENT
  Age: 83 Year
  Sex: Male

DRUGS (4)
  1. PEPCID [Suspect]
     Route: 048
  2. ERYTHROMYCIN [Concomitant]
     Route: 048
  3. MAGNESIUM OXIDE [Concomitant]
     Route: 048
  4. LEVOFLOXACIN [Suspect]
     Route: 048

REACTIONS (1)
  - DRUG INTERACTION [None]
